FAERS Safety Report 24906005 (Version 1)
Quarter: 2025Q1

REPORT INFORMATION
  Report Type: Spontaneous
  Country: BR (occurrence: BR)
  Receive Date: 20250130
  Receipt Date: 20250130
  Transmission Date: 20250409
  Serious: Yes (Other)
  Sender: NOVARTIS
  Company Number: BR-002147023-NVSC2025BR015863

PATIENT
  Age: 18 Year
  Sex: Male

DRUGS (4)
  1. EVEROLIMUS [Suspect]
     Active Substance: EVEROLIMUS
     Indication: Intravascular papillary endothelial hyperplasia
     Dosage: 10 MG, QD
     Route: 065
     Dates: start: 202108
  2. EVEROLIMUS [Suspect]
     Active Substance: EVEROLIMUS
     Dosage: 5 MG, QD
     Route: 065
     Dates: start: 202210
  3. EVEROLIMUS [Suspect]
     Active Substance: EVEROLIMUS
     Route: 065
  4. DENOSUMAB [Suspect]
     Active Substance: DENOSUMAB
     Indication: Intravascular papillary endothelial hyperplasia
     Dosage: 120 MG, QMO
     Route: 065
     Dates: start: 202107

REACTIONS (3)
  - Mucosal inflammation [Unknown]
  - Therapy partial responder [Unknown]
  - Off label use [Unknown]
